FAERS Safety Report 20893067 (Version 1)
Quarter: 2022Q2

REPORT INFORMATION
  Report Type: Spontaneous
  Country: IT (occurrence: IT)
  Receive Date: 20220531
  Receipt Date: 20220531
  Transmission Date: 20220721
  Serious: Yes (Death, Other)
  Sender: FDA-Public Use
  Company Number: IT-ABBVIE-22K-083-4355977-00

PATIENT
  Age: 78 Year
  Sex: Male
  Weight: 60 kg

DRUGS (9)
  1. AMOXICILLIN [Suspect]
     Active Substance: AMOXICILLIN
     Indication: Product used for unknown indication
     Dosage: UNK
     Route: 065
  2. VENETOCLAX [Suspect]
     Active Substance: VENETOCLAX
     Indication: Mantle cell lymphoma
     Dosage: UNK
     Route: 048
     Dates: start: 20220214, end: 20220222
  3. VENETOCLAX [Suspect]
     Active Substance: VENETOCLAX
     Dosage: UNK
     Route: 048
     Dates: start: 20220222, end: 20220308
  4. ALLOPURINOL [Concomitant]
     Active Substance: ALLOPURINOL
     Indication: Tumour lysis syndrome
     Dosage: UNK
     Route: 048
     Dates: start: 2016, end: 20220325
  5. DAPTOMYCIN [Concomitant]
     Active Substance: DAPTOMYCIN
     Indication: Product used for unknown indication
     Dosage: UNK
     Route: 065
  6. DEXAMETHASONE [Concomitant]
     Active Substance: DEXAMETHASONE
     Indication: Disease progression
     Dosage: UNK
     Route: 042
     Dates: start: 20220308, end: 20220325
  7. ESCITALOPRAM [Concomitant]
     Active Substance: ESCITALOPRAM OXALATE
     Indication: Restlessness
     Dosage: UNK
     Route: 042
     Dates: start: 20220308, end: 20220325
  8. FENTANYL [Concomitant]
     Active Substance: FENTANYL
     Indication: Pain
     Dosage: 25 MICROGRAM (ONE EVERY THREE DAYS)
     Route: 062
     Dates: start: 20220201, end: 20220325
  9. RAMIPRIL [Concomitant]
     Active Substance: RAMIPRIL
     Indication: Hypertension
     Dosage: UNK
     Route: 048
     Dates: start: 1990, end: 20220325

REACTIONS (6)
  - Mantle cell lymphoma [Fatal]
  - Abdominal pain [Unknown]
  - C-reactive protein increased [Unknown]
  - Peripheral swelling [Unknown]
  - Skin infection [Unknown]
  - Splenomegaly [Unknown]

NARRATIVE: CASE EVENT DATE: 20220311
